FAERS Safety Report 21805773 (Version 2)
Quarter: 2023Q1

REPORT INFORMATION
  Report Type: Spontaneous
  Country: HU (occurrence: HU)
  Receive Date: 20230102
  Receipt Date: 20230317
  Transmission Date: 20230418
  Serious: Yes (Death, Disabling, Other)
  Sender: FDA-Public Use
  Company Number: None

PATIENT
  Age: 74 Year
  Sex: Female

DRUGS (1)
  1. CLOPIDOGREL BISULFATE [Suspect]
     Active Substance: CLOPIDOGREL BISULFATE
     Indication: Product used for unknown indication
     Dosage: 75 MG

REACTIONS (8)
  - Transient ischaemic attack [Unknown]
  - Hemiplegia [Unknown]
  - Eye movement disorder [Unknown]
  - Hemihypoaesthesia [Unknown]
  - Aphasia [Unknown]
  - Amnesia [Unknown]
  - Cerebral haemorrhage [Fatal]
  - Cerebral haematoma [Fatal]
